FAERS Safety Report 5318082-1 (Version None)
Quarter: 2007Q2

REPORT INFORMATION
  Report Type: 
  Country: None (occurrence: None)
  Receive Date: 20070507
  Receipt Date: 20070426
  Transmission Date: 20071010
  Serious: Yes (Other)
  Sender: FDA-Public Use
  Company Number: HQWYE859026APR07

PATIENT
  Age: 61 Year
  Sex: Female

DRUGS (1)
  1. CONTROLOC [Suspect]
     Indication: ABDOMINAL PAIN UPPER
     Route: 048
     Dates: start: 20070214, end: 20070228

REACTIONS (6)
  - BLOOD LACTATE DEHYDROGENASE INCREASED [None]
  - GAMMA-GLUTAMYLTRANSFERASE INCREASED [None]
  - LEUKOCYTOSIS [None]
  - RED BLOOD CELL SEDIMENTATION RATE INCREASED [None]
  - RED CELL DISTRIBUTION WIDTH INCREASED [None]
  - TRANSAMINASES INCREASED [None]
